FAERS Safety Report 5238838-3 (Version None)
Quarter: 2007Q1

REPORT INFORMATION
  Report Type: 
  Country: None (occurrence: None)
  Receive Date: 20070215
  Receipt Date: 20070202
  Transmission Date: 20070707
  Serious: Yes (Other)
  Sender: FDA-Public Use
  Company Number: PHEH2007US01579

PATIENT
  Age: 7 Year
  Sex: Male

DRUGS (2)
  1. STEROIDS NOS [Concomitant]
  2. ELIDEL [Suspect]
     Indication: DERMATITIS ATOPIC
     Route: 061

REACTIONS (1)
  - NEOPLASM MALIGNANT [None]
